FAERS Safety Report 12057275 (Version 1)
Quarter: 2016Q1

REPORT INFORMATION
  Report Type: Report from Study
  Country: US (occurrence: US)
  Receive Date: 20160210
  Receipt Date: 20160210
  Transmission Date: 20160526
  Serious: Yes (Other)
  Sender: FDA-Public Use
  Company Number: US-ROCHE-1708313

PATIENT
  Sex: Male

DRUGS (2)
  1. NUTROPIN AQ PEN [Suspect]
     Active Substance: SOMATROPIN
     Indication: HYPOPITUITARISM
     Route: 058
  2. NUTROPIN AQ PEN [Suspect]
     Active Substance: SOMATROPIN
     Indication: HYPOGLYCAEMIA

REACTIONS (1)
  - Seizure [Unknown]
